FAERS Safety Report 25221265 (Version 1)
Quarter: 2025Q2

REPORT INFORMATION
  Report Type: Spontaneous
  Country: US (occurrence: US)
  Receive Date: 20250421
  Receipt Date: 20250421
  Transmission Date: 20250716
  Serious: Yes (Other)
  Sender: UCB
  Company Number: US-UCBSA-2024009736

PATIENT
  Sex: Male

DRUGS (1)
  1. NEUPRO [Suspect]
     Active Substance: ROTIGOTINE
     Indication: Parkinson^s disease
     Dosage: 8 MILLIGRAM, ONCE DAILY (QD)
     Route: 062

REACTIONS (5)
  - Hallucination [Recovered/Resolved]
  - Somnolence [Recovering/Resolving]
  - Confusional state [Recovering/Resolving]
  - Weight decreased [Unknown]
  - Wrong technique in product usage process [Unknown]
